FAERS Safety Report 16228515 (Version 2)
Quarter: 2019Q2

REPORT INFORMATION
  Report Type: Spontaneous
  Country: CN (occurrence: CN)
  Receive Date: 20190423
  Receipt Date: 20190528
  Transmission Date: 20190711
  Serious: Yes (Other)
  Sender: FDA-Public Use
  Company Number: CN-ASTELLAS-2019US017449

PATIENT
  Age: 45 Year
  Sex: Male

DRUGS (4)
  1. [NO SUSPECT PRODUCT] [Suspect]
     Active Substance: UNSPECIFIED INGREDIENT
     Indication: PRODUCT USED FOR UNKNOWN INDICATION
     Dosage: UNK UNK, UNKNOWN FREQ.
     Route: 065
  2. CARBOPLATIN. [Concomitant]
     Active Substance: CARBOPLATIN
     Indication: LUNG ADENOCARCINOMA
     Dosage: DAY1
     Route: 065
     Dates: start: 20160117
  3. PACLITAXEL. [Concomitant]
     Active Substance: PACLITAXEL
     Indication: LUNG ADENOCARCINOMA
     Dosage: AT DAY1
     Route: 065
     Dates: start: 20160117
  4. BEVACIZUMAB. [Suspect]
     Active Substance: BEVACIZUMAB
     Indication: LUNG ADENOCARCINOMA
     Dosage: AT DAY1
     Route: 065
     Dates: start: 20160117, end: 201612

REACTIONS (5)
  - Petit mal epilepsy [Recovering/Resolving]
  - EGFR gene mutation [Unknown]
  - Musculoskeletal stiffness [Unknown]
  - Muscle twitching [Recovered/Resolved]
  - Neck pain [Recovering/Resolving]

NARRATIVE: CASE EVENT DATE: 20161212
